FAERS Safety Report 18218829 (Version 3)
Quarter: 2020Q4

REPORT INFORMATION
  Report Type: Spontaneous
  Country: US (occurrence: US)
  Receive Date: 20200901
  Receipt Date: 20201009
  Transmission Date: 20210113
  Serious: Yes (Death)
  Sender: FDA-Public Use
  Company Number: US-CELGENEUS-USA-20200807533

PATIENT
  Age: 81 Year
  Sex: Female
  Weight: 54.48 kg

DRUGS (1)
  1. REVLIMID [Suspect]
     Active Substance: LENALIDOMIDE
     Indication: PLASMA CELL MYELOMA
     Dosage: 15 MILLIGRAM
     Route: 048
     Dates: start: 20200807, end: 20200809

REACTIONS (4)
  - Myocardial infarction [Fatal]
  - Pneumonia [Fatal]
  - Cardiac failure congestive [Fatal]
  - Arrhythmia [Fatal]

NARRATIVE: CASE EVENT DATE: 20200808
